FAERS Safety Report 15331433 (Version 1)
Quarter: 2018Q3

REPORT INFORMATION
  Report Type: Spontaneous
  Country: DE (occurrence: DE)
  Receive Date: 20180829
  Receipt Date: 20180829
  Transmission Date: 20181010
  Serious: Yes (Death)
  Sender: FDA-Public Use
  Company Number: DE-TEVA-2018-DE-949105

PATIENT
  Age: 55 Year
  Sex: Male
  Weight: 120 kg

DRUGS (8)
  1. ACTRAPID [Concomitant]
     Active Substance: INSULIN HUMAN
  2. ZOPICLON [Concomitant]
     Active Substance: ZOPICLONE
     Indication: SCHIZOPHRENIA
     Dosage: 7.5 MILLIGRAM DAILY; DAILY DOSE: 7.5 MG MILLGRAM(S) EVERY DAYS
     Route: 048
     Dates: start: 2017
  3. QUETIAPIN [Suspect]
     Active Substance: QUETIAPINE
     Indication: SCHIZOPHRENIA
     Dosage: 600 MILLIGRAM DAILY;
     Route: 048
     Dates: start: 2017
  4. PIPAMPERON [Suspect]
     Active Substance: PIPAMPERONE HYDROCHLORIDE
     Indication: SCHIZOPHRENIA
     Dosage: 20?20?40?60 MG
     Route: 048
     Dates: start: 2017
  5. PROMETHAZINE [Suspect]
     Active Substance: PROMETHAZINE\PROMETHAZINE HYDROCHLORIDE
     Indication: SCHIZOPHRENIA
     Dosage: 75 MILLIGRAM DAILY;
     Route: 048
     Dates: start: 2017
  6. QUILONORM RETARD [Suspect]
     Active Substance: LITHIUM CARBONATE
     Indication: SCHIZOPHRENIA
     Dosage: 900 MILLIGRAM DAILY; DAILY DOSE: 900 MG MILLGRAM(S) EVERY DAYS
     Route: 048
     Dates: start: 2017
  7. AMARYL [Concomitant]
     Active Substance: GLIMEPIRIDE
     Indication: TYPE 2 DIABETES MELLITUS
     Dosage: 3 MILLIGRAM DAILY; DAILY DOSE: 3 MG MILLGRAM(S) EVERY DAYS
     Route: 048
  8. RAMIPRIL. [Concomitant]
     Active Substance: RAMIPRIL
     Indication: HYPERTONIA
     Dosage: 10 MILLIGRAM DAILY; DAILY DOSE: 10 MG MILLGRAM(S) EVERY DAYS
     Route: 048

REACTIONS (4)
  - Shock [Fatal]
  - Multiple organ dysfunction syndrome [Fatal]
  - Neuroleptic malignant syndrome [Fatal]
  - Hyperthermia [Fatal]

NARRATIVE: CASE EVENT DATE: 20180805
